FAERS Safety Report 4345357-5 (Version None)
Quarter: 2004Q2

REPORT INFORMATION
  Report Type: 
  Country: None (occurrence: None)
  Receive Date: 20040422
  Receipt Date: 20040422
  Transmission Date: 20050107
  Serious: No
  Sender: FDA-Public Use
  Company Number: None

PATIENT
  Age: 25 Year
  Sex: Female
  Weight: 53.5244 kg

DRUGS (1)
  1. ZOLOFT [Suspect]
     Indication: POSTPARTUM DEPRESSION
     Dosage: 50 MG ONCE/DAY ORAL
     Route: 048
     Dates: start: 20011001, end: 20011001

REACTIONS (3)
  - DRUG INEFFECTIVE [None]
  - MASTITIS [None]
  - PAIN [None]
